FAERS Safety Report 16718397 (Version 1)
Quarter: 2019Q3

REPORT INFORMATION
  Report Type: Other
  Country: None (occurrence: CN)
  Receive Date: 20190820
  Receipt Date: 20190820
  Transmission Date: 20191005
  Serious: Yes (Other)
  Sender: FDA-Public Use
  Company Number: CN-SHANGHAI HENGRUI PHARMACEUTICAL CO., LTD.-2073353

PATIENT
  Age: 26 Year
  Sex: Female
  Weight: 40 kg

DRUGS (7)
  1. SUFENTANIL CITRATE INJECTION [Suspect]
     Active Substance: SUFENTANIL CITRATE
     Route: 040
     Dates: start: 20190728, end: 20190728
  2. FLURBIPROFEN AXETIL INJECTION [Concomitant]
     Route: 041
     Dates: start: 20190728, end: 20190728
  3. CISATRACURIUM BESILATE FOR INJECTION [Suspect]
     Active Substance: CISATRACURIUM BESYLATE
     Route: 041
     Dates: start: 20190728, end: 20190728
  4. TROPISETRON MESYLATE LNJECTION [Concomitant]
     Route: 040
     Dates: start: 20190728
  5. PROPOFOL MEDIUM AND LONG CHAIN FAT EMULSION INJECTION [Suspect]
     Active Substance: PROPOFOL
     Route: 041
     Dates: start: 20190728, end: 20190728
  6. SODIUM POTASSIUM MAGNESIUM CALCIUM AND GLUCOSE INJECTION [Concomitant]
     Route: 041
     Dates: start: 20190728, end: 20190728
  7. SEVOFLURANE USP, 100%, LIQUID FOR INHALATION [Suspect]
     Active Substance: SEVOFLURANE
     Indication: MAINTENANCE OF ANAESTHESIA
     Route: 055
     Dates: start: 20190728, end: 20190728

REACTIONS (2)
  - Rash maculo-papular [Recovering/Resolving]
  - Pruritus [Recovering/Resolving]

NARRATIVE: CASE EVENT DATE: 20190728
